FAERS Safety Report 6433019-X (Version None)
Quarter: 2009Q4

REPORT INFORMATION
  Report Type: 
  Country: None (occurrence: None)
  Receive Date: 20091105
  Receipt Date: 20091024
  Transmission Date: 20100525
  Serious: Yes (Hospitalization)
  Sender: FDA-Public Use
  Company Number: OMPQ-NO-0911L-0923

PATIENT
  Age: 72 Year
  Sex: Female

DRUGS (3)
  1. OMNIPAQUE 300 [Suspect]
     Indication: CEREBRAL ISCHAEMIA
     Dosage: 380 ML, SINGLE DOSE, I.A.; I.V.; 55 ML, SINGLE DOSE, I.A.
     Route: 013
  2. OMNIPAQUE 300 [Suspect]
     Indication: HAEMORRHAGIC STROKE
     Dosage: 380 ML, SINGLE DOSE, I.A.; I.V.; 55 ML, SINGLE DOSE, I.A.
     Route: 013
  3. OMNIPAQUE 300 [Suspect]
     Indication: THERAPEUTIC EMBOLISATION
     Dosage: 380 ML, SINGLE DOSE, I.A.; I.V.; 55 ML, SINGLE DOSE, I.A.
     Route: 013

REACTIONS (7)
  - APHASIA [None]
  - BLOOD BRAIN BARRIER DEFECT [None]
  - DEPRESSED LEVEL OF CONSCIOUSNESS [None]
  - DRUG TOXICITY [None]
  - EXTRAVASATION [None]
  - HEMIPLEGIA [None]
  - UNRESPONSIVE TO STIMULI [None]
